FAERS Safety Report 6175602-5 (Version None)
Quarter: 2009Q2

REPORT INFORMATION
  Report Type: 
  Country: None (occurrence: None)
  Receive Date: 20090501
  Receipt Date: 20090424
  Transmission Date: 20091009
  Serious: Yes (Other)
  Sender: FDA-Public Use
  Company Number: MX-BAYER-200915583LA

PATIENT
  Age: 32 Year
  Sex: Female
  Weight: 61 kg

DRUGS (1)
  1. YASMIN [Suspect]
     Indication: CONTRACEPTION
     Route: 048
     Dates: start: 20010101, end: 20061201

REACTIONS (7)
  - EYE DISCHARGE [None]
  - EYE PAIN [None]
  - GLAUCOMA [None]
  - HEADACHE [None]
  - OCULAR DISCOMFORT [None]
  - PHOTOPHOBIA [None]
  - VISION BLURRED [None]
